FAERS Safety Report 11662369 (Version 2)
Quarter: 2015Q4

REPORT INFORMATION
  Report Type: Report from Study
  Country: BR (occurrence: BR)
  Receive Date: 20151027
  Receipt Date: 20151030
  Transmission Date: 20160304
  Serious: Yes (Other)
  Sender: FDA-Public Use
  Company Number: BR-ROCHE-1350372

PATIENT
  Age: 57 Year
  Sex: Female
  Weight: 67 kg

DRUGS (15)
  1. ALENDRONATE [Concomitant]
     Active Substance: ALENDRONATE SODIUM
     Route: 065
  2. ACTEMRA [Suspect]
     Active Substance: TOCILIZUMAB
     Dosage: LAST INFUSION ON 01/SEP/2015
     Route: 042
     Dates: start: 20120123
  3. PANTOPRAZOLE [Concomitant]
     Active Substance: PANTOPRAZOLE SODIUM
  4. GABAPENTIN. [Concomitant]
     Active Substance: GABAPENTIN
  5. PURAN [Concomitant]
     Active Substance: LEVOTHYROXINE SODIUM
     Route: 065
  6. GLIFAGE [Concomitant]
     Active Substance: METFORMIN HYDROCHLORIDE
     Route: 065
  7. LISADOR [Concomitant]
     Active Substance: DIPYRONE\PROMETHAZINE HYDROCHLORIDE
  8. ACTEMRA [Suspect]
     Active Substance: TOCILIZUMAB
     Indication: RHEUMATOID ARTHRITIS
     Dosage: LATEST INFUSION RECEIVED ON 01/DEC/2013.
     Route: 042
     Dates: start: 20120101
  9. NAPRIX [Concomitant]
     Active Substance: RAMIPRIL
     Indication: BLOOD PRESSURE MEASUREMENT
     Route: 065
  10. PURAN [Concomitant]
     Active Substance: LEVOTHYROXINE SODIUM
     Route: 065
  11. ACICLOVIR [Concomitant]
     Active Substance: ACYCLOVIR
     Indication: HERPES ZOSTER
  12. SIMVASTATIN. [Concomitant]
     Active Substance: SIMVASTATIN
     Route: 065
  13. DOMPERIDONE [Concomitant]
     Active Substance: DOMPERIDONE
  14. PREDSIM [Concomitant]
     Active Substance: PREDNISOLONE
  15. DEPURA [Concomitant]
     Active Substance: CHOLECALCIFEROL

REACTIONS (8)
  - Rheumatoid arthritis [Unknown]
  - Helicobacter infection [Unknown]
  - Hyperglycaemia [Unknown]
  - Herpes zoster [Unknown]
  - Weight increased [Unknown]
  - Anxiety [Unknown]
  - Unevaluable investigation [Unknown]
  - Skin cancer [Unknown]

NARRATIVE: CASE EVENT DATE: 201311
